FAERS Safety Report 21020412 (Version 1)
Quarter: 2022Q2

REPORT INFORMATION
  Report Type: Other
  Country: IL (occurrence: None)
  Receive Date: 20220629
  Receipt Date: 20220629
  Transmission Date: 20220721
  Serious: No
  Sender: FDA-Public Use
  Company Number: IL-ROCHE-3125500

PATIENT
  Age: 49 Year
  Sex: Female

DRUGS (1)
  1. OCREVUS [Suspect]
     Active Substance: OCRELIZUMAB
     Indication: Primary progressive multiple sclerosis
     Route: 042
     Dates: start: 20201207

REACTIONS (3)
  - SARS-CoV-2 test positive [Recovering/Resolving]
  - Oropharyngeal pain [Recovering/Resolving]
  - Polymerase chain reaction positive [Not Recovered/Not Resolved]

NARRATIVE: CASE EVENT DATE: 20220623
